FAERS Safety Report 18709241 (Version 2)
Quarter: 2021Q1

REPORT INFORMATION
  Report Type: Report from Study
  Country: US (occurrence: US)
  Receive Date: 20210107
  Receipt Date: 20210118
  Transmission Date: 20210419
  Serious: Yes (Hospitalization)
  Sender: FDA-Public Use
  Company Number: US-ROCHE-2744780

PATIENT
  Age: 18 Year
  Sex: Female
  Weight: 85.3 kg

DRUGS (12)
  1. METHYLPREDNISOLONE. [Concomitant]
     Active Substance: METHYLPREDNISOLONE
     Route: 042
     Dates: start: 20201216, end: 20201216
  2. METHYLPREDNISOLONE. [Concomitant]
     Active Substance: METHYLPREDNISOLONE
     Route: 042
     Dates: start: 20201229, end: 20201229
  3. ATIVAN [Concomitant]
     Active Substance: LORAZEPAM
     Indication: INSOMNIA
     Dates: start: 20201215
  4. METHYLPREDNISOLONE. [Concomitant]
     Active Substance: METHYLPREDNISOLONE
     Route: 042
     Dates: start: 20201230, end: 20201230
  5. DIPHENHYDRAMINE. [Concomitant]
     Active Substance: DIPHENHYDRAMINE
     Indication: PREMEDICATION
     Route: 048
     Dates: start: 20201215, end: 20201215
  6. OBINUTUZUMAB. [Suspect]
     Active Substance: OBINUTUZUMAB
     Indication: COLORECTAL ADENOCARCINOMA
     Dosage: DOSE LAST STUDY DRUG ADMIN PRIOR AE IS 1000 MG?START DATE OF MOST RECENT DOSE OF STUDY DRUG PRIOR TO
     Route: 042
     Dates: start: 20201215
  7. RO6958688 (T?CELL BISPECIFIC MONOCLONAL ANTIBODY) [Suspect]
     Active Substance: CIBISATAMAB
     Indication: COLORECTAL ADENOCARCINOMA
     Dosage: DOSE LAST STUDY DRUG ADMIN PRIOR AE: 100 MG?START DATE OF MOST RECENT DOSE OF STUDY DRUG PRIOR TO AE
     Route: 042
     Dates: start: 20201229
  8. ATEZOLIZUMAB. [Suspect]
     Active Substance: ATEZOLIZUMAB
     Indication: COLORECTAL ADENOCARCINOMA
     Dosage: DOSE LAST STUDY DRUG ADMIN PRIOR AE IS 1200 MG?START DATE OF MOST RECENT DOSE OF STUDY DRUG PRIOR TO
     Route: 041
     Dates: start: 20201229
  9. METHYLPREDNISOLONE. [Concomitant]
     Active Substance: METHYLPREDNISOLONE
     Indication: PREMEDICATION
     Route: 042
     Dates: start: 20201215, end: 20201215
  10. ACETAMINOPHEN. [Concomitant]
     Active Substance: ACETAMINOPHEN
     Indication: PREMEDICATION
     Route: 048
     Dates: start: 20201215, end: 20201215
  11. ACETAMINOPHEN. [Concomitant]
     Active Substance: ACETAMINOPHEN
     Route: 048
     Dates: start: 20201216, end: 20201216
  12. DIPHENHYDRAMINE. [Concomitant]
     Active Substance: DIPHENHYDRAMINE
     Route: 048
     Dates: start: 20201216, end: 20201216

REACTIONS (1)
  - Enteritis [Recovered/Resolved]

NARRATIVE: CASE EVENT DATE: 20210104
